FAERS Safety Report 5465211-5 (Version None)
Quarter: 2007Q3

REPORT INFORMATION
  Report Type: 
  Country: None (occurrence: None)
  Receive Date: 20070920
  Receipt Date: 20070905
  Transmission Date: 20080115
  Serious: Yes (Other)
  Sender: FDA-Public Use
  Company Number: 1022556-2007-00239

PATIENT
  Sex: Male

DRUGS (3)
  1. UNISOM [Suspect]
     Indication: SLEEP DISORDER
     Dosage: 8-12 TABLETS NIGHTLY; SEERAL MONTHS
  2. STEROID [Concomitant]
  3. EPHEDRA [Concomitant]

REACTIONS (9)
  - CONFUSIONAL STATE [None]
  - DEPRESSION [None]
  - DIZZINESS [None]
  - DYSKINESIA [None]
  - NAUSEA [None]
  - OVERDOSE [None]
  - SOMNOLENCE [None]
  - SYNCOPE [None]
  - VOMITING [None]
